FAERS Safety Report 20749891 (Version 1)
Quarter: 2022Q2

REPORT INFORMATION
  Report Type: Spontaneous
  Country: US (occurrence: US)
  Receive Date: 20220426
  Receipt Date: 20220426
  Transmission Date: 20220721
  Serious: Yes (Other)
  Sender: FDA-Public Use
  Company Number: US-PFIZER INC-202101001021

PATIENT
  Age: 36 Year
  Sex: Female

DRUGS (5)
  1. CABERGOLINE [Suspect]
     Active Substance: CABERGOLINE
     Indication: Prolactin-producing pituitary tumour
     Dosage: 0.25 MG, WEEKLY
     Route: 048
     Dates: start: 2009
  2. CABERGOLINE [Suspect]
     Active Substance: CABERGOLINE
     Dosage: 0.25 MG TWICE WEEKLY
     Route: 048
  3. CABERGOLINE [Suspect]
     Active Substance: CABERGOLINE
     Dosage: 0.25 MG, 2X/WEEK
     Route: 048
     Dates: start: 2010, end: 2013
  4. CABERGOLINE [Suspect]
     Active Substance: CABERGOLINE
     Dosage: 0.25 MG, 2X/WEEK
     Route: 048
  5. CABERGOLINE [Suspect]
     Active Substance: CABERGOLINE
     Dosage: 0.25 MG, WEEKLY
     Route: 048

REACTIONS (6)
  - Hemianopia heteronymous [Unknown]
  - Empty sella syndrome [Unknown]
  - Panic attack [Unknown]
  - Anxiety [Unknown]
  - Dizziness [Unknown]
  - Balance disorder [Unknown]

NARRATIVE: CASE EVENT DATE: 20130101
